FAERS Safety Report 14666622 (Version 1)
Quarter: 2018Q1

REPORT INFORMATION
  Report Type: Spontaneous
  Country: US (occurrence: US)
  Receive Date: 20180322
  Receipt Date: 20180322
  Transmission Date: 20180509
  Serious: Yes (Hospitalization, Other)
  Sender: FDA-Public Use
  Company Number: US-ALVOGEN-2018-ALVOGEN-095515

PATIENT
  Age: 54 Year
  Sex: Male

DRUGS (1)
  1. BUDESONIDE. [Suspect]
     Active Substance: BUDESONIDE
     Indication: COLITIS MICROSCOPIC

REACTIONS (3)
  - Shigella infection [Unknown]
  - Gastroenteritis Escherichia coli [Unknown]
  - Enterocolitis infectious [Recovering/Resolving]
